FAERS Safety Report 5796353 (Version 3)
Quarter: 2012Q4

REPORT INFORMATION
  Report Type: 
  Country: TW (occurrence: TW)
  Receive Date: 20050516
  Receipt Date: 20121219
  Transmission Date: 20130627
  Serious: Yes (Other)
  Sender: FDA-Public Use
  Company Number: TW-JNJFOC-20050406971

PATIENT
  Age: 56 Year
  Sex: Male

DRUGS (9)
  1. IBUPROFEN [Suspect]
     Indication: PAIN
     Route: 048
  2. IBUPROFEN [Suspect]
     Indication: PAIN
     Dosage: used most of the time
     Route: 048
  3. NAPROXEN [Suspect]
     Indication: BACK PAIN
     Route: 048
  4. NAPROXEN [Suspect]
     Indication: ARTHRALGIA
     Route: 048
  5. RENITEC [Concomitant]
  6. PROPANOLOL [Concomitant]
  7. PROBENECID [Concomitant]
  8. IMIPRAMINE [Concomitant]
     Dosage: 25 mg/day; 75 mg HS
  9. FLUOXETINE [Concomitant]

REACTIONS (7)
  - Suicidal ideation [Recovered/Resolved]
  - Agitation [Recovered/Resolved]
  - Condition aggravated [Recovered/Resolved]
  - Aggression [Recovered/Resolved]
  - Paranoia [Recovered/Resolved]
  - Depression [Recovered/Resolved]
  - Delusion [Recovered/Resolved]
